FAERS Safety Report 18889869 (Version 2)
Quarter: 2021Q1

REPORT INFORMATION
  Report Type: Spontaneous
  Country: AU (occurrence: AU)
  Receive Date: 20210213
  Receipt Date: 20210222
  Transmission Date: 20210420
  Serious: Yes (Other)
  Sender: FDA-Public Use
  Company Number: AU-SA-2021SA046813

PATIENT
  Age: 63 Year
  Sex: Male

DRUGS (6)
  1. RAMIPRIL. [Suspect]
     Active Substance: RAMIPRIL
     Dosage: UNK
     Route: 048
  2. ESOMEPRAZOLE. [Suspect]
     Active Substance: ESOMEPRAZOLE MAGNESIUM
  3. DOXYLAMINE SUCCINATE. [Suspect]
     Active Substance: DOXYLAMINE SUCCINATE
  4. ALLOPURINOL. [Suspect]
     Active Substance: ALLOPURINOL
  5. ATORVASTATIN [Suspect]
     Active Substance: ATORVASTATIN
  6. RIVAROXABAN [Suspect]
     Active Substance: RIVAROXABAN

REACTIONS (4)
  - Hallucination [Recovered/Resolved]
  - Agitation [Recovered/Resolved]
  - Abnormal dreams [Recovered/Resolved]
  - Personality change [Recovered/Resolved]
